FAERS Safety Report 12894434 (Version 1)
Quarter: 2016Q4

REPORT INFORMATION
  Report Type: Other
  Country: US (occurrence: US)
  Receive Date: 20161028
  Receipt Date: 20161028
  Transmission Date: 20170207
  Serious: Yes (Hospitalization, Other)
  Sender: FDA-Public Use
  Company Number: US-WOCKHARDT USA, LLC-1059019

PATIENT
  Age: 18 Month
  Sex: Female

DRUGS (4)
  1. LEVETIRACETAM. [Concomitant]
     Active Substance: LEVETIRACETAM
  2. DIVALPROEX [Suspect]
     Active Substance: DIVALPROEX SODIUM
  3. CLOBAZAM [Concomitant]
     Active Substance: CLOBAZAM
  4. TOPIRIMATE [Concomitant]

REACTIONS (1)
  - Food interaction [Unknown]
